FAERS Safety Report 5088177-9 (Version None)
Quarter: 2006Q3

REPORT INFORMATION
  Report Type: 
  Country: None (occurrence: None)
  Receive Date: 20060727
  Receipt Date: 20060403
  Transmission Date: 20061208
  Serious: Yes (Other)
  Sender: FDA-Public Use
  Company Number: 2006013761

PATIENT
  Age: 67 Year
  Sex: Male
  Weight: 76.2043 kg

DRUGS (11)
  1. LYRICA [Suspect]
     Indication: DIABETIC NEUROPATHY
     Dosage: 75 MG (25 MG,2 IN 1 D)
  2. CELLCEPT [Suspect]
     Indication: ILL-DEFINED DISORDER
  3. CYCLOSPORINE [Suspect]
     Indication: PROPHYLAXIS AGAINST TRANSPLANT REJECTION
  4. IMMUNOSUPPRESSIVE AGENTS (IMMUNOSUPPRESSIVE AGENTS) [Suspect]
     Indication: ILL-DEFINED DISORDER
  5. GABAPENTIN [Suspect]
     Indication: ILL-DEFINED DISORDER
  6. FOSAMAX [Concomitant]
  7. PROGRAF [Concomitant]
  8. IMURAN [Concomitant]
  9. REGLAN [Concomitant]
  10. SEPTRA [Concomitant]
  11. PREDNISONE TAB [Concomitant]

REACTIONS (3)
  - DIABETIC NEUROPATHY [None]
  - DRUG INTERACTION [None]
  - GLYCOSYLATED HAEMOGLOBIN INCREASED [None]
